FAERS Safety Report 7953071-X (Version None)
Quarter: 2011Q4

REPORT INFORMATION
  Report Type: 
  Country: None (occurrence: None)
  Receive Date: 20111201
  Receipt Date: 20111125
  Transmission Date: 20120403
  Serious: Yes (Other)
  Sender: FDA-Public Use
  Company Number: GB-PFIZER INC-2011289190

PATIENT
  Sex: Female

DRUGS (3)
  1. VARENICLINE TARTRATE [Suspect]
     Indication: SMOKING CESSATION THERAPY
     Dosage: UNK
  2. VARENICLINE TARTRATE [Suspect]
     Dosage: 1 MG, UNK
  3. FLUOXETINE [Concomitant]
     Indication: DEPRESSION
     Dosage: 60 MG, UNK

REACTIONS (4)
  - ROAD TRAFFIC ACCIDENT [None]
  - SUICIDAL IDEATION [None]
  - ABNORMAL BEHAVIOUR [None]
  - STERNAL FRACTURE [None]
